FAERS Safety Report 4430942-2 (Version None)
Quarter: 2004Q3

REPORT INFORMATION
  Report Type: 
  Country: None (occurrence: None)
  Receive Date: 20040824
  Receipt Date: 20040810
  Transmission Date: 20050211
  Serious: Yes (Hospitalization)
  Sender: FDA-Public Use
  Company Number: AU-MERCK-0408AUS00048

PATIENT
  Age: 85 Year
  Sex: Female

DRUGS (3)
  1. FOSAMAX [Suspect]
     Indication: OSTEOPOROSIS
     Route: 048
     Dates: start: 19980101, end: 20000101
  2. FOSAMAX [Suspect]
     Route: 048
     Dates: start: 20000101, end: 20040101
  3. FOSAMAX [Suspect]
     Route: 048
     Dates: start: 20040101, end: 20040724

REACTIONS (6)
  - ADVERSE EVENT [None]
  - ANOREXIA [None]
  - DYSPEPSIA [None]
  - HAEMATEMESIS [None]
  - MEDICATION ERROR [None]
  - OESOPHAGITIS [None]
